FAERS Safety Report 6184405-7 (Version None)
Quarter: 2009Q2

REPORT INFORMATION
  Report Type: 
  Country: None (occurrence: None)
  Receive Date: 20090508
  Receipt Date: 20090428
  Transmission Date: 20091009
  Serious: Yes (Other)
  Sender: FDA-Public Use
  Company Number: B0571420A

PATIENT
  Sex: Female
  Weight: 120 kg

DRUGS (5)
  1. LAMICTAL [Suspect]
     Indication: DRUG USE FOR UNKNOWN INDICATION
     Route: 065
     Dates: start: 20000101
  2. PROPRANOLOL [Concomitant]
     Indication: ADVERSE DRUG REACTION
     Route: 065
  3. CLOBAZAM [Concomitant]
     Route: 065
  4. NEXIUM [Concomitant]
     Route: 065
  5. ANTIDEPRESSANT [Concomitant]

REACTIONS (9)
  - ACTIVITIES OF DAILY LIVING IMPAIRED [None]
  - AMNESIA [None]
  - BALANCE DISORDER [None]
  - HYPOKINESIA [None]
  - HYPOTONIA [None]
  - SOMNOLENCE [None]
  - SPEECH DISORDER [None]
  - VISION BLURRED [None]
  - VISUAL IMPAIRMENT [None]
